FAERS Safety Report 4677641-X (Version None)
Quarter: 2005Q2

REPORT INFORMATION
  Report Type: 
  Country: None (occurrence: None)
  Receive Date: 20050531
  Receipt Date: 20050519
  Transmission Date: 20051028
  Serious: Yes (Hospitalization)
  Sender: FDA-Public Use
  Company Number: RO-ROCHE-405266

PATIENT
  Age: 45 Year

DRUGS (4)
  1. COPEGUS [Suspect]
     Route: 048
     Dates: start: 20040915, end: 20050302
  2. COPEGUS [Suspect]
     Route: 048
     Dates: start: 20050401
  3. PEGASYS [Concomitant]
     Dosage: ROUTE REPORTED AS INJECTABLE. THE PATIENT STARTED WITH PEG-INTERFERON ALFA 2A 180 MCG WEEKLY AND ON+
     Route: 050
     Dates: start: 20040915
  4. BENAZEPRIL HCL [Concomitant]
     Route: 048

REACTIONS (1)
  - NODULE [None]
